FAERS Safety Report 18754248 (Version 2)
Quarter: 2021Q1

REPORT INFORMATION
  Report Type: Report from Study
  Country: CN (occurrence: CN)
  Receive Date: 20210119
  Receipt Date: 20210122
  Transmission Date: 20210419
  Serious: Yes (Other)
  Sender: FDA-Public Use
  Company Number: CN-BRISTOL-MYERS SQUIBB COMPANY-BMS-2021-002637

PATIENT
  Age: 47 Year
  Sex: Female

DRUGS (1)
  1. NIVOLUMAB [Suspect]
     Active Substance: NIVOLUMAB
     Indication: SQUAMOUS CELL CARCINOMA OF HEAD AND NECK
     Dosage: 140 MILLIGRAM, Q2WK
     Route: 042
     Dates: start: 20201109

REACTIONS (3)
  - Neck mass [Unknown]
  - Tumour haemorrhage [Unknown]
  - Limb mass [Unknown]

NARRATIVE: CASE EVENT DATE: 202101
